FAERS Safety Report 22914145 (Version 2)
Quarter: 2023Q4

REPORT INFORMATION
  Report Type: Spontaneous
  Country: BE (occurrence: BE)
  Receive Date: 20230906
  Receipt Date: 20231026
  Transmission Date: 20240109
  Serious: Yes (Death, Other)
  Sender: FDA-Public Use
  Company Number: BE-BRISTOL-MYERS SQUIBB COMPANY-2023-125343

PATIENT
  Age: 71 Year
  Sex: Male

DRUGS (1)
  1. INREBIC [Suspect]
     Active Substance: FEDRATINIB HYDROCHLORIDE
     Indication: Primary myelofibrosis
     Dosage: DOSE : UNAVAILABLE;     FREQ : UNAVAILABLE
     Route: 048
     Dates: start: 20230605, end: 20230805

REACTIONS (1)
  - Septic shock [Fatal]

NARRATIVE: CASE EVENT DATE: 20230805
